FAERS Safety Report 17411620 (Version 1)
Quarter: 2020Q1

REPORT INFORMATION
  Report Type: Spontaneous
  Country: US (occurrence: US)
  Receive Date: 20200213
  Receipt Date: 20200213
  Transmission Date: 20200409
  Serious: Yes (Other)
  Sender: FDA-Public Use
  Company Number: US-ROCHE-2543766

PATIENT
  Sex: Female
  Weight: 90.8 kg

DRUGS (2)
  1. LISINOPRIL. [Concomitant]
     Active Substance: LISINOPRIL
  2. ACTEMRA [Suspect]
     Active Substance: TOCILIZUMAB
     Indication: TEMPORAL ARTERITIS
     Dosage: ONGOING:YES
     Route: 058
     Dates: start: 20190201

REACTIONS (2)
  - Renal impairment [Not Recovered/Not Resolved]
  - Glomerular filtration rate decreased [Recovered/Resolved]
